FAERS Safety Report 14491524 (Version 1)
Quarter: 2018Q1

REPORT INFORMATION
  Report Type: Spontaneous
  Country: US (occurrence: US)
  Receive Date: 20180206
  Receipt Date: 20180206
  Transmission Date: 20180509
  Serious: Yes (Hospitalization, Other)
  Sender: FDA-Public Use
  Company Number: US-GLAXOSMITHKLINE-US2018015549

PATIENT
  Age: 65 Year
  Sex: Female

DRUGS (5)
  1. FLUTICASONE NASAL SPRAY [Concomitant]
     Active Substance: FLUTICASONE
  2. GABAPENTIN. [Concomitant]
     Active Substance: GABAPENTIN
  3. LORATADINE. [Concomitant]
     Active Substance: LORATADINE
  4. MONTELUKAST TABLETS [Concomitant]
  5. ADVAIR DISKUS [Suspect]
     Active Substance: FLUTICASONE PROPIONATE\SALMETEROL XINAFOATE
     Indication: ASTHMA
     Dosage: 1 PUFF(S), BID
     Route: 055

REACTIONS (10)
  - Sarcoma excision [Recovered/Resolved with Sequelae]
  - Radiotherapy [Recovered/Resolved with Sequelae]
  - Scab [Not Recovered/Not Resolved]
  - Soft tissue disorder [Not Recovered/Not Resolved]
  - Asthma [Not Recovered/Not Resolved]
  - Lung lobectomy [Unknown]
  - Hip arthroplasty [Recovered/Resolved]
  - Radiation skin injury [Not Recovered/Not Resolved]
  - Lung neoplasm malignant [Unknown]
  - Skin discolouration [Not Recovered/Not Resolved]

NARRATIVE: CASE EVENT DATE: 200310
